FAERS Safety Report 21000469 (Version 3)
Quarter: 2022Q4

REPORT INFORMATION
  Report Type: Spontaneous
  Country: US (occurrence: US)
  Receive Date: 20220623
  Receipt Date: 20221115
  Transmission Date: 20230112
  Serious: Yes (Other)
  Sender: FDA-Public Use
  Company Number: US-BRISTOL-MYERS SQUIBB COMPANY-2022-058713

PATIENT
  Age: 39 Year
  Sex: Male
  Weight: 69.4 kg

DRUGS (3)
  1. REVLIMID [Suspect]
     Active Substance: LENALIDOMIDE
     Indication: Plasmacytoma
     Dosage: 21 DAYS ON 7 DAYS OFF 28 DAYS
     Route: 048
     Dates: start: 20220610
  2. REVLIMID [Suspect]
     Active Substance: LENALIDOMIDE
     Indication: Monoclonal gammopathy
     Dosage: 21 DAYS ON 7 DAYS OFF 28 DAYS
     Route: 048
     Dates: start: 20220612
  3. REVLIMID [Suspect]
     Active Substance: LENALIDOMIDE
     Dosage: 21 DAYS ON 7 DAYS OFF 28 DAYS
     Route: 048
     Dates: start: 20220612

REACTIONS (2)
  - Hepatic enzyme increased [Unknown]
  - Off label use [Unknown]
